FAERS Safety Report 9411407 (Version 1)
Quarter: 2013Q3

REPORT INFORMATION
  Report Type: Spontaneous
  Country: ES (occurrence: ES)
  Receive Date: 20130722
  Receipt Date: 20130722
  Transmission Date: 20140515
  Serious: Yes (Other)
  Sender: FDA-Public Use
  Company Number: PHHY2013ES075639

PATIENT
  Age: 34 Year
  Sex: Female

DRUGS (1)
  1. IBUPROFENO BEXAL [Suspect]
     Indication: BACK PAIN
     Dosage: 1 DF, Q8H
     Route: 048
     Dates: start: 20130605, end: 20130612

REACTIONS (2)
  - Colitis ulcerative [Recovered/Resolved]
  - Abdominal pain upper [Recovered/Resolved]
